FAERS Safety Report 12160386 (Version 1)
Quarter: 2016Q1

REPORT INFORMATION
  Report Type: Spontaneous
  Country: US (occurrence: US)
  Receive Date: 20160308
  Receipt Date: 20160308
  Transmission Date: 20160526
  Serious: No
  Sender: FDA-Public Use
  Company Number: US-PFIZER INC-2016081876

PATIENT
  Age: 68 Year
  Sex: Female

DRUGS (10)
  1. GABAPENTIN. [Concomitant]
     Active Substance: GABAPENTIN
  2. POTASSIUM [Concomitant]
     Active Substance: POTASSIUM
  3. VITAMIN D /00107901/ [Concomitant]
     Active Substance: ERGOCALCIFEROL
     Dosage: TWICE A DAY
  4. GLUCOSAMINE [Concomitant]
     Active Substance: GLUCOSAMINE
  5. METHYLSULFONAL [Concomitant]
  6. DIAZEPAM. [Concomitant]
     Active Substance: DIAZEPAM
  7. LORAZEPAM. [Concomitant]
     Active Substance: LORAZEPAM
     Dosage: UNK
  8. CHANTIX [Suspect]
     Active Substance: VARENICLINE TARTRATE
     Dosage: 1 MG, UNK
  9. ADDERALL [Concomitant]
     Active Substance: AMPHETAMINE ASPARTATE\AMPHETAMINE SULFATE\DEXTROAMPHETAMINE SACCHARATE\DEXTROAMPHETAMINE SULFATE
  10. CHONDROITIN SULFATE [Concomitant]
     Active Substance: SODIUM CHONDROITIN SULFATE

REACTIONS (3)
  - Incorrect dose administered [Unknown]
  - Nightmare [Unknown]
  - Paranoia [Unknown]
